FAERS Safety Report 6898660-9 (Version None)
Quarter: 2010Q3

REPORT INFORMATION
  Report Type: 
  Country: None (occurrence: None)
  Receive Date: 20100802
  Receipt Date: 20071115
  Transmission Date: 20110219
  Serious: No
  Sender: FDA-Public Use
  Company Number: US-PFIZER INC-2007079328

PATIENT
  Sex: Female
  Weight: 49 kg

DRUGS (7)
  1. LYRICA [Suspect]
     Indication: PARAESTHESIA
     Route: 048
     Dates: start: 20070719
  2. SYNTHROID [Concomitant]
  3. VITAMINS [Concomitant]
  4. LIPITOR [Concomitant]
  5. MOBIC [Concomitant]
  6. FOSAMAX [Concomitant]
  7. RANITIDINE [Concomitant]

REACTIONS (3)
  - ALOPECIA [None]
  - ENERGY INCREASED [None]
  - VISION BLURRED [None]
